FAERS Safety Report 9708127 (Version 1)
Quarter: 2013Q4

REPORT INFORMATION
  Report Type: Report from Study
  Country: CN (occurrence: CN)
  Receive Date: 20131125
  Receipt Date: 20131125
  Transmission Date: 20140711
  Serious: Yes (Death, Other)
  Sender: FDA-Public Use
  Company Number: CN-BAXTER-2013BAX046658

PATIENT
  Sex: 0

DRUGS (6)
  1. ENDOXAN 1G [Suspect]
     Indication: FACTOR VIII INHIBITION
     Route: 042
  2. ENDOXAN 1G [Suspect]
     Indication: IMMUNOSUPPRESSANT DRUG THERAPY
  3. TRIAMCINOLONE [Suspect]
     Indication: FACTOR VIII INHIBITION
     Route: 065
  4. TRIAMCINOLONE [Suspect]
     Indication: IMMUNOSUPPRESSANT DRUG THERAPY
  5. AZATHIOPRINE [Suspect]
     Indication: FACTOR VIII INHIBITION
     Route: 065
  6. AZATHIOPRINE [Suspect]
     Indication: IMMUNOSUPPRESSANT DRUG THERAPY

REACTIONS (3)
  - Infection [Fatal]
  - Haemorrhage [Fatal]
  - No therapeutic response [Not Recovered/Not Resolved]
